FAERS Safety Report 18486527 (Version 7)
Quarter: 2023Q2

REPORT INFORMATION
  Report Type: Spontaneous
  Country: CA (occurrence: CA)
  Receive Date: 20201110
  Receipt Date: 20230517
  Transmission Date: 20230722
  Serious: Yes (Death, Hospitalization, Other)
  Sender: FDA-Public Use
  Company Number: CA-SAMSUNG BIOEPIS-SB-2020-33708

PATIENT
  Age: 72 Year
  Sex: Female
  Weight: 71 kg

DRUGS (11)
  1. INFLIXIMAB [Suspect]
     Active Substance: INFLIXIMAB
     Indication: Rheumatoid arthritis
     Route: 042
  2. INFLIXIMAB [Suspect]
     Active Substance: INFLIXIMAB
     Route: 041
  3. INFLIXIMAB [Suspect]
     Active Substance: INFLIXIMAB
     Route: 042
  4. METHOTREXATE [Concomitant]
     Active Substance: METHOTREXATE
     Indication: Product used for unknown indication
     Route: 048
  5. METHOTREXATE [Concomitant]
     Active Substance: METHOTREXATE
     Dosage: UNKNOWN
     Route: 048
  6. PREDNISONE [Concomitant]
     Active Substance: PREDNISONE
     Indication: Product used for unknown indication
     Route: 065
  7. PREDNISONE [Concomitant]
     Active Substance: PREDNISONE
     Route: 065
  8. DIPHENHYDRAMINE [Concomitant]
     Active Substance: DIPHENHYDRAMINE
     Indication: Premedication
     Route: 042
  9. DIPHENHYDRAMINE [Concomitant]
     Active Substance: DIPHENHYDRAMINE
     Route: 042
  10. HYDROCORTISONE [Concomitant]
     Active Substance: HYDROCORTISONE
     Indication: Premedication
     Route: 042
  11. SOLU-CORTEF [Concomitant]
     Active Substance: HYDROCORTISONE SODIUM SUCCINATE
     Indication: Premedication
     Dosage: POWDER FOR SOLUTION, INTRAMUSCULAR
     Route: 065

REACTIONS (29)
  - Death [Fatal]
  - Arthralgia [Fatal]
  - Ear pain [Fatal]
  - Tooth extraction [Fatal]
  - Tooth fracture [Fatal]
  - Tooth infection [Fatal]
  - Urinary tract infection [Fatal]
  - Dyspnoea [Fatal]
  - Dyspnoea exertional [Fatal]
  - Infusion site erythema [Fatal]
  - Infusion site pain [Fatal]
  - Infusion site swelling [Fatal]
  - Pneumonia [Fatal]
  - Lung disorder [Fatal]
  - Cardiac failure [Fatal]
  - Myocardial infarction [Fatal]
  - Chest pain [Fatal]
  - Arthritis [Fatal]
  - Malaise [Fatal]
  - Musculoskeletal stiffness [Fatal]
  - Aphasia [Fatal]
  - Blood pressure increased [Fatal]
  - Chest discomfort [Fatal]
  - Dysstasia [Fatal]
  - Lower respiratory tract infection [Fatal]
  - Respiratory rate increased [Fatal]
  - Inappropriate schedule of product administration [Fatal]
  - Product dose omission issue [Fatal]
  - Off label use [Fatal]
